FAERS Safety Report 10145514 (Version 3)
Quarter: 2014Q2

REPORT INFORMATION
  Report Type: Spontaneous
  Country: US (occurrence: US)
  Receive Date: 20140501
  Receipt Date: 20140623
  Transmission Date: 20141212
  Serious: Yes (Other)
  Sender: FDA-Public Use
  Company Number: US-JNJFOC-20140417531

PATIENT
  Age: 51 Year
  Sex: Male
  Weight: 99.79 kg

DRUGS (12)
  1. STELARA [Suspect]
     Indication: PSORIASIS
     Route: 058
     Dates: start: 20100901
  2. ASA [Concomitant]
     Route: 048
     Dates: start: 2009
  3. LIPITOR [Concomitant]
     Route: 048
     Dates: start: 2009
  4. FLONASE [Concomitant]
     Route: 045
     Dates: start: 2011
  5. LISINOPRIL [Concomitant]
     Route: 048
     Dates: start: 2008
  6. PREVACID [Concomitant]
     Route: 048
     Dates: start: 2008
  7. HYDROCODONE [Concomitant]
     Dosage: 7.5/325
     Route: 048
     Dates: start: 2011
  8. VICTOZA [Concomitant]
     Route: 058
     Dates: start: 201308
  9. HYDROCHLOROTHIAZIDE [Concomitant]
     Dosage: 10/12.5
     Route: 048
     Dates: start: 2008
  10. METFORMIN [Concomitant]
     Dosage: 10/12.5
     Route: 048
     Dates: start: 2008, end: 2008
  11. NORTRIPTYLINE [Concomitant]
     Dosage: 10/12.5
     Route: 048
     Dates: end: 2008
  12. OXAPROZIN [Concomitant]
     Dosage: 10/12.5
     Route: 065
     Dates: start: 2007

REACTIONS (2)
  - Cystitis [Recovered/Resolved]
  - Orchitis [Recovered/Resolved]
